FAERS Safety Report 8132702-8 (Version None)
Quarter: 2012Q1

REPORT INFORMATION
  Report Type: 
  Country: None (occurrence: None)
  Receive Date: 20120207
  Receipt Date: 20120127
  Transmission Date: 20120608
  Serious: Yes (Other)
  Sender: FDA-Public Use
  Company Number: MSTR-NO-1201S-0010

PATIENT
  Sex: Female

DRUGS (2)
  1. ABRAXANE [Suspect]
     Indication: BREAST CANCER
     Dosage: NR, UNKNOWN
  2. METASTRON [Suspect]
     Indication: METASTATIC PAIN
     Dosage: 103 MBQ, SINGLE DOSE, INTRAVENOUS
     Route: 042
     Dates: start: 20120111, end: 20120111

REACTIONS (1)
  - INTERSTITIAL LUNG DISEASE [None]
